FAERS Safety Report 5630314-9 (Version None)
Quarter: 2008Q1

REPORT INFORMATION
  Report Type: 
  Country: None (occurrence: None)
  Receive Date: 20080213
  Receipt Date: 20080128
  Transmission Date: 20080703
  Serious: Yes (Other)
  Sender: FDA-Public Use
  Company Number: TRP_01044_2008

PATIENT
  Sex: Female

DRUGS (3)
  1. RIBAVIRIN [Suspect]
     Indication: HEPATITIS C VIRUS
     Dosage: (ORAL)
     Route: 048
     Dates: start: 20070101, end: 20080121
  2. PEGASYS [Suspect]
     Indication: HEPATITIS C VIRUS
     Dosage: (SUBCUTANEOUS)
     Route: 058
     Dates: start: 20070716, end: 20070727
  3. PEGASYS [Suspect]
     Indication: HEPATITIS C VIRUS
     Dosage: (SUBCUTANEOUS)
     Route: 058
     Dates: start: 20070101, end: 20080121

REACTIONS (4)
  - ALOPECIA [None]
  - HOMICIDAL IDEATION [None]
  - MEMORY IMPAIRMENT [None]
  - SUICIDAL IDEATION [None]
